FAERS Safety Report 4781339-7 (Version None)
Quarter: 2005Q3

REPORT INFORMATION
  Report Type: 
  Country: None (occurrence: None)
  Receive Date: 20050914
  Receipt Date: 20050818
  Transmission Date: 20060218
  Serious: No
  Sender: FDA-Public Use
  Company Number: IND-AE-05-SAN-054

PATIENT
  Sex: Female

DRUGS (2)
  1. SANCTURA [Suspect]
     Indication: HYPERTONIC BLADDER
     Dosage: 20MG BID; ORAL
     Route: 048
     Dates: start: 20050701, end: 20050801
  2. VIVELLE-DOT [Concomitant]

REACTIONS (2)
  - DIARRHOEA [None]
  - VISION BLURRED [None]
